FAERS Safety Report 21968754 (Version 2)
Quarter: 2023Q1

REPORT INFORMATION
  Report Type: Spontaneous
  Country: US (occurrence: None)
  Receive Date: 20230208
  Receipt Date: 20230308
  Transmission Date: 20230418
  Serious: No
  Sender: FDA-Public Use
  Company Number: 2023A027809

PATIENT
  Age: 59 Year
  Sex: Female
  Weight: 72.6 kg

DRUGS (2)
  1. BUDESONIDE\FORMOTEROL\GLYCOPYRRONIUM [Suspect]
     Active Substance: BUDESONIDE\FORMOTEROL\GLYCOPYRRONIUM
     Indication: Chronic obstructive pulmonary disease
     Route: 055
  2. BUDESONIDE\FORMOTEROL\GLYCOPYRRONIUM [Suspect]
     Active Substance: BUDESONIDE\FORMOTEROL\GLYCOPYRRONIUM
     Indication: Chronic obstructive pulmonary disease
     Route: 055
     Dates: start: 20221231

REACTIONS (8)
  - Throat irritation [Unknown]
  - Cough [Unknown]
  - Product quality issue [Unknown]
  - Device delivery system issue [Unknown]
  - Product use issue [Unknown]
  - Drug ineffective [Unknown]
  - Device use issue [Unknown]
  - Device defective [Unknown]

NARRATIVE: CASE EVENT DATE: 20221231
